FAERS Safety Report 7740202-X (Version None)
Quarter: 2011Q3

REPORT INFORMATION
  Report Type: 
  Country: None (occurrence: None)
  Receive Date: 20110909
  Receipt Date: 20110909
  Transmission Date: 20111222
  Serious: Yes (Hospitalization)
  Sender: FDA-Public Use
  Company Number: None

PATIENT
  Age: 67 Year
  Sex: Male
  Weight: 86.8 kg

DRUGS (1)
  1. COLCRYS [Suspect]

REACTIONS (2)
  - SWELLING FACE [None]
  - LIP SWELLING [None]
